FAERS Safety Report 6742691-6 (Version None)
Quarter: 2010Q2

REPORT INFORMATION
  Report Type: 
  Country: None (occurrence: None)
  Receive Date: 20100526
  Receipt Date: 20090728
  Transmission Date: 20101027
  Serious: No
  Sender: FDA-Public Use
  Company Number: US-ABBOTT-09P-163-0588418-00

PATIENT
  Sex: Female
  Weight: 99.88 kg

DRUGS (1)
  1. ZEMPLAR [Suspect]
     Indication: RENAL FAILURE CHRONIC
     Dosage: CAN'T RECALL STRENGTH
     Route: 048
     Dates: start: 20080101, end: 20080101

REACTIONS (2)
  - HEADACHE [None]
  - URTICARIA [None]
